FAERS Safety Report 12087723 (Version 1)
Quarter: 2016Q1

REPORT INFORMATION
  Report Type: Spontaneous
  Country: US (occurrence: US)
  Receive Date: 20160217
  Receipt Date: 20160217
  Transmission Date: 20160526
  Serious: No
  Sender: FDA-Public Use
  Company Number: US-ALLERGAN-1520700US

PATIENT
  Sex: Female

DRUGS (5)
  1. ALLERX D [Concomitant]
     Indication: DRY EYE
  2. RESTASIS [Suspect]
     Active Substance: CYCLOSPORINE
     Dosage: UNK
     Route: 047
     Dates: start: 201507
  3. ARTIFICIAL TEARS [Concomitant]
     Active Substance: GLYCERIN\HYPROMELLOSES\POLYETHYLENE GLYCOL 400
     Indication: DRY EYE
  4. RESTASIS [Suspect]
     Active Substance: CYCLOSPORINE
     Indication: DRY EYE
     Dosage: UNK
     Route: 047
  5. ALPHAGAN P [Suspect]
     Active Substance: BRIMONIDINE TARTRATE
     Indication: PRODUCT USED FOR UNKNOWN INDICATION
     Dosage: UNK
     Route: 047

REACTIONS (1)
  - Drug ineffective [Unknown]
